FAERS Safety Report 25094867 (Version 1)
Quarter: 2025Q1

REPORT INFORMATION
  Report Type: Spontaneous
  Country: CA (occurrence: CA)
  Receive Date: 20250319
  Receipt Date: 20250319
  Transmission Date: 20250409
  Serious: Yes (Other)
  Sender: BIOCODEX
  Company Number: CA-BIOCODEX2-2025000302

PATIENT

DRUGS (3)
  1. STIRIPENTOL [Suspect]
     Active Substance: STIRIPENTOL
     Indication: Severe myoclonic epilepsy of infancy
     Dosage: 14.89 MG/KG DAILY
     Route: 065
  2. CLOBAZAM [Concomitant]
     Active Substance: CLOBAZAM
     Indication: Product used for unknown indication
     Route: 065
  3. valproate sodium tablets [Concomitant]
     Indication: Product used for unknown indication
     Route: 065

REACTIONS (13)
  - Behaviour disorder [Unknown]
  - Decreased appetite [Unknown]
  - Drooling [Unknown]
  - Dysarthria [Unknown]
  - Fatigue [Unknown]
  - Gait disturbance [Unknown]
  - Hyperammonaemic encephalopathy [Unknown]
  - Lethargy [Unknown]
  - Seizure [Unknown]
  - Sleep disorder [Unknown]
  - Somnolence [Unknown]
  - Tremor [Unknown]
  - Weight decreased [Unknown]
